FAERS Safety Report 11663749 (Version 3)
Quarter: 2015Q4

REPORT INFORMATION
  Report Type: Spontaneous
  Country: US (occurrence: US)
  Receive Date: 20151027
  Receipt Date: 20151204
  Transmission Date: 20160304
  Serious: No
  Sender: FDA-Public Use
  Company Number: PHEH2015US021078

PATIENT
  Sex: Female

DRUGS (1)
  1. VOTRIENT [Suspect]
     Active Substance: PAZOPANIB HYDROCHLORIDE
     Indication: BREAST CANCER
     Dosage: 800 MG, QD
     Route: 065
     Dates: start: 20150819

REACTIONS (3)
  - Muscular weakness [Unknown]
  - Fatigue [Unknown]
  - Vaginal haemorrhage [Unknown]
